FAERS Safety Report 12779715 (Version 1)
Quarter: 2016Q3

REPORT INFORMATION
  Report Type: Spontaneous
  Country: US (occurrence: US)
  Receive Date: 20160926
  Receipt Date: 20160926
  Transmission Date: 20161109
  Serious: No
  Sender: FDA-Public Use
  Company Number: US-PFIZER INC-2016442764

PATIENT
  Age: 61 Year
  Sex: Male

DRUGS (4)
  1. GABAPENTIN. [Suspect]
     Active Substance: GABAPENTIN
  2. COZAAR [Suspect]
     Active Substance: LOSARTAN POTASSIUM
  3. LISINOPRIL. [Suspect]
     Active Substance: LISINOPRIL
  4. BEE VENOM [Suspect]
     Active Substance: APIS MELLIFERA VENOM

REACTIONS (1)
  - Drug hypersensitivity [Unknown]
